FAERS Safety Report 8093589 (Version 3)
Quarter: 2016Q1

REPORT INFORMATION
  Report Type: Spontaneous
  Country: JP (occurrence: JP)
  Receive Date: 20110817
  Receipt Date: 20160114
  Transmission Date: 20160526
  Serious: Yes (Hospitalization, Other)
  Sender: FDA-Public Use
  Company Number: JP-BRISTOL-MYERS SQUIBB COMPANY-15973118

PATIENT
  Age: 0 Day
  Sex: Male
  Weight: 4.3 kg

DRUGS (1)
  1. ABILIFY [Suspect]
     Active Substance: ARIPIPRAZOLE
     Indication: PRODUCT USED FOR UNKNOWN INDICATION
     Dosage: UNK
     Route: 064
     Dates: start: 20100731

REACTIONS (5)
  - Foetal exposure during pregnancy [Unknown]
  - C-reactive protein increased [Recovered/Resolved]
  - Hypoglycaemia neonatal [Recovered/Resolved]
  - Exposure during breast feeding [Unknown]
  - Large for dates baby [Unknown]

NARRATIVE: CASE EVENT DATE: 20110414
